FAERS Safety Report 10217010 (Version 2)
Quarter: 2014Q3

REPORT INFORMATION
  Report Type: Spontaneous
  Country: US (occurrence: US)
  Receive Date: 20140604
  Receipt Date: 20140720
  Transmission Date: 20150326
  Serious: No
  Sender: FDA-Public Use
  Company Number: US-ASTRAZENECA-2014SE36617

PATIENT
  Age: 77 Year
  Sex: Female

DRUGS (1)
  1. SYMBICORT [Suspect]
     Active Substance: BUDESONIDE\FORMOTEROL FUMARATE DIHYDRATE
     Indication: CHRONIC OBSTRUCTIVE PULMONARY DISEASE
     Dosage: 80 4.5MCG 2 PUFFS BID
     Route: 055

REACTIONS (5)
  - Hearing impaired [Unknown]
  - Panic attack [Unknown]
  - Malaise [Unknown]
  - Decreased appetite [Unknown]
  - Depression [Unknown]
